FAERS Safety Report 21241939 (Version 1)
Quarter: 2022Q3

REPORT INFORMATION
  Report Type: Report from Study
  Country: US (occurrence: None)
  Receive Date: 20220823
  Receipt Date: 20220823
  Transmission Date: 20221027
  Serious: Yes (Hospitalization)
  Sender: FDA-Public Use
  Company Number: US-ROCHE-3129517

PATIENT
  Age: 62 Year
  Sex: Male
  Weight: 88.530 kg

DRUGS (3)
  1. OBINUTUZUMAB [Suspect]
     Active Substance: OBINUTUZUMAB
     Indication: Mantle cell lymphoma
     Dosage: MOST RECENT DOSE OF OBINUTUZUMAB WAS RECEIVED ON 17/MAY/2022
     Route: 042
     Dates: start: 20220321
  2. VENETOCLAX [Suspect]
     Active Substance: VENETOCLAX
     Indication: Mantle cell lymphoma
     Dosage: MOST RECENT DOSE OF VENETOCLAX WAS RECEIVED ON 25/MAY/2022
     Route: 048
     Dates: start: 20220328
  3. BENDAMUSTINE [Suspect]
     Active Substance: BENDAMUSTINE
     Indication: Mantle cell lymphoma
     Dosage: MOST RECENT DOSE OF BENDAMUSTINE WAS RECEIVED ON 17/MAY/2022
     Route: 042
     Dates: start: 20220321

REACTIONS (1)
  - Embolism [Recovered/Resolved]

NARRATIVE: CASE EVENT DATE: 20220628
